FAERS Safety Report 5961320-2 (Version None)
Quarter: 2008Q4

REPORT INFORMATION
  Report Type: 
  Country: None (occurrence: None)
  Receive Date: 20081121
  Receipt Date: 20081110
  Transmission Date: 20090506
  Serious: Yes (Other)
  Sender: FDA-Public Use
  Company Number: SA-ROCHE-596423

PATIENT
  Age: 65 Year
  Sex: Female
  Weight: 65 kg

DRUGS (3)
  1. BONIVA [Suspect]
     Indication: OSTEOPOROSIS
     Route: 048
     Dates: start: 20060915, end: 20080918
  2. MOBIC [Concomitant]
     Indication: OSTEOARTHRITIS
     Dates: start: 19950101
  3. DAONIL [Concomitant]
     Dosage: DRUG REPORTED AS: DOANIL
     Dates: start: 19950101

REACTIONS (4)
  - BLOOD PRESSURE DECREASED [None]
  - HYPERSENSITIVITY [None]
  - HYPOAESTHESIA [None]
  - NEURALGIA [None]
